FAERS Safety Report 9596251 (Version 2)
Quarter: 2013Q4

REPORT INFORMATION
  Report Type: Spontaneous
  Country: US (occurrence: US)
  Receive Date: 20131004
  Receipt Date: 20131004
  Transmission Date: 20140711
  Serious: Yes (Hospitalization)
  Sender: FDA-Public Use
  Company Number: US-B.I. PHARMACEUTICALS,INC./RIDGEFIELD-2013-BI-12333BP

PATIENT
  Age: 69 Year
  Sex: Male
  Weight: 77.11 kg

DRUGS (9)
  1. PRADAXA [Suspect]
     Indication: ANTICOAGULANT THERAPY
     Dosage: 300 MG
     Route: 048
     Dates: start: 20110224, end: 20110330
  2. PRADAXA [Suspect]
     Indication: ATRIAL FIBRILLATION
  3. FUROSEMIDE [Concomitant]
     Dosage: 40 MG
     Route: 048
     Dates: start: 20050625
  4. PRILOSEC [Concomitant]
     Dosage: 20 MG
     Route: 048
  5. LANOXIN [Concomitant]
     Dosage: 25 MCG
     Route: 048
  6. EX-FORGE [Concomitant]
     Route: 048
     Dates: start: 20080416
  7. LOVAZA [Concomitant]
     Dates: start: 20080216
  8. CARVEDILOL [Concomitant]
     Dosage: 25 MG
     Route: 048
     Dates: start: 20071005
  9. SPIRONOLACTONE [Concomitant]
     Dosage: 25 MG
     Route: 048
     Dates: start: 20090826

REACTIONS (3)
  - Gastrointestinal haemorrhage [Recovered/Resolved]
  - Hyperkalaemia [Recovered/Resolved]
  - Renal failure acute [Not Recovered/Not Resolved]
